FAERS Safety Report 15490995 (Version 1)
Quarter: 2018Q4

REPORT INFORMATION
  Report Type: Spontaneous
  Country: US (occurrence: US)
  Receive Date: 20181012
  Receipt Date: 20181012
  Transmission Date: 20190205
  Serious: No
  Sender: FDA-Public Use
  Company Number: US-BION-006968

PATIENT
  Sex: Female

DRUGS (1)
  1. PROMETRIUM [Suspect]
     Active Substance: PROGESTERONE
     Indication: PRODUCT USED FOR UNKNOWN INDICATION
     Dosage: STRENGTH: 200 MG
     Route: 067

REACTIONS (4)
  - Incorrect route of product administration [Not Recovered/Not Resolved]
  - Product colour issue [Unknown]
  - Vaginal discharge [Unknown]
  - Maternal exposure during pregnancy [Unknown]
